FAERS Safety Report 5649363-X (Version None)
Quarter: 2008Q1

REPORT INFORMATION
  Report Type: 
  Country: None (occurrence: None)
  Receive Date: 20080304
  Receipt Date: 20080115
  Transmission Date: 20080703
  Serious: No
  Sender: FDA-Public Use
  Company Number: US-BAYER-200811711NA

PATIENT
  Age: 68 Year
  Sex: Female

DRUGS (8)
  1. ULTRAVIST 370 [Suspect]
     Indication: ANGIOGRAM
     Dosage: TOTAL DAILY DOSE: 125 ML  UNIT DOSE: 125 ML
     Route: 042
     Dates: start: 20080115, end: 20080115
  2. VITAMIN E [Concomitant]
  3. COLACE [Concomitant]
  4. LYRICA [Concomitant]
  5. LISINOPRIL [Concomitant]
  6. PLAVIX [Concomitant]
  7. TOPROL [Concomitant]
  8. CRESTOR [Concomitant]

REACTIONS (1)
  - URTICARIA [None]
